FAERS Safety Report 4712800-9 (Version None)
Quarter: 2005Q3

REPORT INFORMATION
  Report Type: 
  Country: None (occurrence: None)
  Receive Date: 20050708
  Receipt Date: 20050708
  Transmission Date: 20060218
  Serious: Yes (Other)
  Sender: FDA-Public Use
  Company Number: None

PATIENT
  Sex: Male
  Weight: 89 kg

DRUGS (5)
  1. CISPLATIN [Suspect]
     Indication: SMALL CELL LUNG CANCER STAGE UNSPECIFIED
     Dosage: 87 MG/M2 IV TOTAL DOSE 127 MG
     Route: 042
     Dates: start: 20050613, end: 20050613
  2. MANNITOL [Suspect]
     Dosage: 12.5 GMS IV OVER 2 HOURS
     Route: 042
  3. ETOPOSIDE [Suspect]
     Dosage: 80MG/M2 IV OVER 1 HOUR DAY 2 AND 3.
     Route: 042
     Dates: start: 20050613, end: 20050613
  4. ETOPOSIDE [Suspect]
     Dosage: 500MG PO ON DAY 2 AND 3.
     Route: 048
     Dates: start: 20050613, end: 20050613
  5. RADIATION [Suspect]
     Dosage: EXTERNAL BEAM 3D
     Route: 050
     Dates: end: 20050707

REACTIONS (3)
  - NEUTROPHIL COUNT DECREASED [None]
  - PYREXIA [None]
  - WHITE BLOOD CELL COUNT DECREASED [None]
